FAERS Safety Report 10363726 (Version 1)
Quarter: 2014Q3

REPORT INFORMATION
  Report Type: Spontaneous
  Country: US (occurrence: None)
  Receive Date: 20140801
  Receipt Date: 20140801
  Transmission Date: 20150326
  Serious: Yes (Death)
  Sender: FDA-Public Use
  Company Number: 2014VID00017

PATIENT
  Age: 44 Year
  Sex: Female

DRUGS (1)
  1. ACTIMMUNE [Suspect]
     Active Substance: INTERFERON GAMMA-1B
     Indication: MYCOBACTERIAL INFECTION
     Dosage: 3X/WEEK
     Route: 058
     Dates: start: 20140612

REACTIONS (1)
  - Death [None]
